FAERS Safety Report 19198979 (Version 1)
Quarter: 2021Q2

REPORT INFORMATION
  Report Type: Spontaneous
  Country: US (occurrence: US)
  Receive Date: 20210429
  Receipt Date: 20210429
  Transmission Date: 20210717
  Serious: No
  Sender: FDA-Public Use
  Company Number: US-ROCHE-2747029

PATIENT
  Age: 69 Year
  Sex: Female
  Weight: 81.72 kg

DRUGS (11)
  1. METOPROLOL. [Concomitant]
     Active Substance: METOPROLOL
     Indication: HYPERTENSION
     Route: 048
     Dates: start: 2015
  2. ACYCLOVIR. [Concomitant]
     Active Substance: ACYCLOVIR
     Indication: MENINGITIS
     Route: 048
     Dates: start: 2018
  3. TRAMADOL. [Concomitant]
     Active Substance: TRAMADOL
     Indication: PAIN
     Route: 048
     Dates: start: 2015
  4. TOPIRAMATE. [Concomitant]
     Active Substance: TOPIRAMATE
     Indication: INSOMNIA
     Route: 048
     Dates: start: 2015
  5. MIRTAZAPINE. [Concomitant]
     Active Substance: MIRTAZAPINE
     Indication: INSOMNIA
     Dosage: TAKES AT NIGHT
     Route: 048
     Dates: start: 2015
  6. PANTOPRAZOLE [Concomitant]
     Active Substance: PANTOPRAZOLE
     Indication: DYSPEPSIA
     Dates: start: 2015
  7. SYNTHROID [Concomitant]
     Active Substance: LEVOTHYROXINE SODIUM
     Indication: PRODUCT USED FOR UNKNOWN INDICATION
     Route: 048
     Dates: start: 1990
  8. CLOPIDOGREL [Concomitant]
     Active Substance: CLOPIDOGREL BISULFATE
     Indication: PRODUCT USED FOR UNKNOWN INDICATION
     Route: 048
  9. ALPRAZOLAM. [Concomitant]
     Active Substance: ALPRAZOLAM
     Indication: INSOMNIA
     Dosage: TAKES TWO 0.5 MG TABLETS AT NIGHT
     Route: 048
     Dates: start: 2015
  10. ATORVASTATIN [Concomitant]
     Active Substance: ATORVASTATIN
     Indication: PRODUCT USED FOR UNKNOWN INDICATION
     Route: 048
     Dates: start: 2015
  11. KADCYLA [Suspect]
     Active Substance: ADO-TRASTUZUMAB EMTANSINE
     Indication: INVASIVE DUCTAL BREAST CARCINOMA
     Dosage: ONGOING: YES
     Route: 048
     Dates: start: 20201201

REACTIONS (5)
  - Tenderness [Not Recovered/Not Resolved]
  - Headache [Not Recovered/Not Resolved]
  - Erythema [Not Recovered/Not Resolved]
  - Nausea [Not Recovered/Not Resolved]
  - Radiation injury [Not Recovered/Not Resolved]

NARRATIVE: CASE EVENT DATE: 202012
